FAERS Safety Report 4407654-4 (Version None)
Quarter: 2004Q3

REPORT INFORMATION
  Report Type: 
  Country: None (occurrence: None)
  Receive Date: 20040721
  Receipt Date: 20040705
  Transmission Date: 20050211
  Serious: Yes (Hospitalization)
  Sender: FDA-Public Use
  Company Number: DSA_24656_2004

PATIENT
  Age: 85 Year
  Sex: Male

DRUGS (11)
  1. ENALAPRIL MALEATE [Suspect]
     Indication: CARDIAC FAILURE CONGESTIVE
     Dosage: DF, PO
     Route: 048
  2. DIGOXIN [Suspect]
     Indication: CARDIAC FAILURE CONGESTIVE
     Dosage: 0.125 MG Q DAY PO
     Route: 048
     Dates: end: 20030922
  3. DIGOXIN [Suspect]
     Indication: CARDIAC FAILURE CONGESTIVE
     Dosage: 0.125 MG 3XWK, PO
     Route: 048
     Dates: start: 20031001
  4. RIVASTIGMINE [Suspect]
     Indication: DEMENTIA ALZHEIMER'S TYPE
     Dosage: 6 MG BID, PO
     Route: 048
     Dates: end: 20030922
  5. RIVASTIGMINE [Suspect]
     Indication: DEMENTIA ALZHEIMER'S TYPE
     Dosage: 3 MG BID PO
     Route: 048
     Dates: start: 20031001
  6. ACETAMINOPHEN [Concomitant]
  7. ASPIRIN [Concomitant]
  8. FUROSEMIDE [Concomitant]
  9. MEMANTINE HCL [Concomitant]
  10. SPIRONOLACTONE [Concomitant]
  11. TRIMETAZIDINE [Concomitant]

REACTIONS (3)
  - ATRIAL FIBRILLATION [None]
  - BRADYCARDIA [None]
  - MALAISE [None]
